FAERS Safety Report 6648879-7 (Version None)
Quarter: 2010Q1

REPORT INFORMATION
  Report Type: 
  Country: None (occurrence: None)
  Receive Date: 20100324
  Receipt Date: 20100312
  Transmission Date: 20100710
  Serious: Yes (Other)
  Sender: FDA-Public Use
  Company Number: SE-PFIZER INC-2010023042

PATIENT
  Age: 70 Year
  Sex: Female

DRUGS (9)
  1. TOVIAZ [Suspect]
     Indication: HYPERTONIC BLADDER
     Dosage: 4 MG, UNK
     Dates: start: 20070101, end: 20100216
  2. TOVIAZ [Suspect]
     Dosage: 8 MG, UNK
     Dates: start: 20100217
  3. EMCONCOR [Concomitant]
     Dosage: UNK
  4. AMIAS [Concomitant]
     Dosage: UNK
  5. PREDNISOLONE [Concomitant]
     Dosage: 2.5 MG, UNK
  6. METHOTREXAT [Concomitant]
     Dosage: UNK
  7. FOLACIN [Concomitant]
     Dosage: UNK
  8. VAGIFEM [Concomitant]
     Dosage: UNK
  9. CALCICHEW-D3 [Concomitant]
     Dosage: UNK

REACTIONS (11)
  - ABDOMINAL PAIN LOWER [None]
  - COLD SWEAT [None]
  - DRUG EFFECT DECREASED [None]
  - MICTURITION URGENCY [None]
  - PRURITUS [None]
  - RESTLESSNESS [None]
  - SUICIDAL IDEATION [None]
  - URINARY HESITATION [None]
  - URINARY RETENTION [None]
  - URINARY TRACT INFECTION [None]
  - UTERINE SPASM [None]
